FAERS Safety Report 4576521-8 (Version None)
Quarter: 2005Q1

REPORT INFORMATION
  Report Type: 
  Country: None (occurrence: None)
  Receive Date: 20050119
  Receipt Date: 20040422
  Transmission Date: 20050727
  Serious: Yes (Hospitalization)
  Sender: FDA-Public Use
  Company Number: A03200401253

PATIENT
  Age: 67 Year
  Sex: Female
  Weight: 75.7507 kg

DRUGS (4)
  1. PLAVIX [Suspect]
     Indication: STENT PLACEMENT
     Dosage: 75 MG QD - ORAL
     Route: 048
     Dates: start: 20031001, end: 20040311
  2. METOPROLOL SUCCINATE [Concomitant]
  3. IRON [Concomitant]
  4. PANTOPRAZOLE SODIUM [Concomitant]

REACTIONS (3)
  - DIZZINESS [None]
  - FAECAL OCCULT BLOOD POSITIVE [None]
  - HAEMOGLOBIN DECREASED [None]
